FAERS Safety Report 9861616 (Version 1)
Quarter: 2014Q1

REPORT INFORMATION
  Report Type: Report from Study
  Country: GB (occurrence: GB)
  Receive Date: 20140203
  Receipt Date: 20140203
  Transmission Date: 20141002
  Serious: Yes (Hospitalization)
  Sender: FDA-Public Use
  Company Number: GB-ROCHE-1340170

PATIENT
  Sex: Female

DRUGS (1)
  1. RITUXIMAB [Suspect]
     Indication: RHEUMATOID ARTHRITIS
     Route: 065
     Dates: start: 20111115

REACTIONS (5)
  - Pleural effusion [Unknown]
  - Aortic stenosis [Unknown]
  - Neutropenic sepsis [Unknown]
  - Neutropenia [Unknown]
  - Lower respiratory tract infection [Unknown]
